FAERS Safety Report 18319571 (Version 1)
Quarter: 2020Q3

REPORT INFORMATION
  Report Type: Spontaneous
  Country: DE (occurrence: DE)
  Receive Date: 20200928
  Receipt Date: 20200928
  Transmission Date: 20201103
  Serious: Yes (Hospitalization, Other)
  Sender: FDA-Public Use
  Company Number: DE-TEVA-2020-DE-1830690

PATIENT
  Age: 81 Year
  Sex: Female

DRUGS (10)
  1. AMIODARON [Suspect]
     Active Substance: AMIODARONE
     Dosage: 200 MG
     Dates: start: 20200525
  2. METOPROLOL. [Concomitant]
     Active Substance: METOPROLOL
     Dosage: 95 MILLIGRAM DAILY;  1?0?1?0
  3. TORASEMID [Concomitant]
     Active Substance: TORSEMIDE
     Dosage: 5 MILLIGRAM DAILY; 1?0?0?0
  4. PANTOPRAZOL [Concomitant]
     Active Substance: PANTOPRAZOLE SODIUM
     Dosage: 40 MILLIGRAM DAILY; 1?0?0?0
  5. SIMVASTATIN. [Concomitant]
     Active Substance: SIMVASTATIN
     Dosage: 20 MILLIGRAM DAILY;  0?0?1?0
  6. SALMETEROL [Concomitant]
     Active Substance: SALMETEROL
     Dosage: 50 MICROGRAM DAILY; 1?0?1?0
  7. RAMIPRIL. [Concomitant]
     Active Substance: RAMIPRIL
     Dosage: 2.5 MILLIGRAM DAILY; 1?0?0?0
  8. SPIRIVA [Concomitant]
     Active Substance: TIOTROPIUM BROMIDE MONOHYDRATE
     Dosage: 18 MICROGRAM DAILY; 1?0?0?0
  9. LEVOTHYROXIN?NATRIUM [Concomitant]
     Active Substance: LEVOTHYROXINE SODIUM
     Dosage: 75 MICROGRAM DAILY; 1?0?0?0
  10. APIXABAN [Concomitant]
     Active Substance: APIXABAN
     Dosage: 10 MILLIGRAM DAILY; 1?0?1?0

REACTIONS (5)
  - General physical health deterioration [Recovering/Resolving]
  - Dyspnoea [Recovering/Resolving]
  - Hypothyroidism [Recovering/Resolving]
  - Abdominal distension [Recovering/Resolving]
  - Oedema peripheral [Recovering/Resolving]
